FAERS Safety Report 11160249 (Version 1)
Quarter: 2015Q2

REPORT INFORMATION
  Report Type: Report from Study
  Country: US (occurrence: US)
  Receive Date: 20150603
  Receipt Date: 20150603
  Transmission Date: 20150821
  Serious: Yes (Other)
  Sender: FDA-Public Use
  Company Number: US-MERCK-1506USA001522

PATIENT

DRUGS (2)
  1. ZOLINZA [Suspect]
     Active Substance: VORINOSTAT
     Indication: NEOPLASM MALIGNANT
     Dosage: 400MG DAILY
     Route: 048
  2. PAZOPANIB [Suspect]
     Active Substance: PAZOPANIB
     Indication: NEOPLASM MALIGNANT
     Dosage: 600MG DAILY
     Route: 048

REACTIONS (1)
  - Rash [Unknown]
